FAERS Safety Report 19498944 (Version 1)
Quarter: 2021Q3

REPORT INFORMATION
  Report Type: Report from Study
  Country: AE (occurrence: AE)
  Receive Date: 20210706
  Receipt Date: 20210706
  Transmission Date: 20211014
  Serious: Yes (Other)
  Sender: FDA-Public Use
  Company Number: AE-BAYER-2021-165843

PATIENT
  Sex: Female

DRUGS (1)
  1. ADEMPAS [Suspect]
     Active Substance: RIOCIGUAT
     Indication: PULMONARY ARTERIAL HYPERTENSION
     Dosage: 2.5 MG, QD (2.5MG 3 TABLETS ONCE A DAY )
     Route: 048
     Dates: start: 20201019

REACTIONS (3)
  - Loss of consciousness [Unknown]
  - Labile blood pressure [Unknown]
  - Cough [Unknown]
